FAERS Safety Report 7312001-4 (Version None)
Quarter: 2011Q1

REPORT INFORMATION
  Report Type: 
  Country: None (occurrence: None)
  Receive Date: 20110214
  Receipt Date: 20110129
  Transmission Date: 20110831
  Serious: Yes (Death, Life-Threatening, Hospitalization)
  Sender: FDA-Public Use
  Company Number: 2011AP000165

PATIENT
  Age: 44 Year
  Sex: Male

DRUGS (8)
  1. OLANZAPINE [Suspect]
     Dosage: 20 MG;QD;PO
     Route: 048
  2. VALSARTAN [Concomitant]
  3. PAROXETINE HYDROCHLORIDE [Suspect]
     Dosage: 10 MG;QD;PO
     Route: 048
  4. OMEPRAZOLE [Concomitant]
  5. QUETIAPINE [Suspect]
     Dosage: 100 MG;QD;PO
     Route: 048
  6. GABAPENTIN [Concomitant]
  7. CLONAZEPAM [Suspect]
     Dosage: 1 M;TID;PO
     Route: 048
  8. LEVOTHYROXINE [Concomitant]

REACTIONS (15)
  - UNRESPONSIVE TO STIMULI [None]
  - BLOOD CALCIUM DECREASED [None]
  - BLOOD THYROID STIMULATING HORMONE INCREASED [None]
  - HYPOTHERMIA [None]
  - BLOOD CHLORIDE DECREASED [None]
  - COMA [None]
  - BLOOD LACTIC ACID INCREASED [None]
  - DRUG SCREEN POSITIVE [None]
  - HYPONATRAEMIA [None]
  - CARDIAC ARREST [None]
  - HYPOXIC-ISCHAEMIC ENCEPHALOPATHY [None]
  - HYPOTENSION [None]
  - BRAIN INJURY [None]
  - PULSE ABSENT [None]
  - BLOOD GLUCOSE INCREASED [None]
